FAERS Safety Report 8556299-3 (Version None)
Quarter: 2012Q2

REPORT INFORMATION
  Report Type: 
  Country: None (occurrence: None)
  Receive Date: 20120418
  Receipt Date: 20100303
  Transmission Date: 20120825
  Serious: Yes (Other)
  Sender: FDA-Public Use
  Company Number: PHEH2007US12316

PATIENT
  Age: 12 Year
  Sex: Female

DRUGS (16)
  1. BACTRIM [Concomitant]
  2. VINCRISTINE [Concomitant]
  3. CYCLOPHOSPHAMIDE [Concomitant]
  4. ZANTAC (RANITDINE HYDROHCLORIDE) [Concomitant]
  5. BLEOMYCIN SULFATE [Concomitant]
  6. ACETAMINOPHEN [Concomitant]
  7. ELIDEL [Suspect]
     Indication: DERMATITIS
     Dosage: 30 G, TOPICAL
     Route: 061
     Dates: start: 20020901
  8. DIPHENHYDRAMINE HCL [Concomitant]
  9. PHENERGAN ^AVENTIS PHARMA^ (PROMETHAZINE HYDROCHLORIDE) [Concomitant]
  10. ONDANSETRON (ONSANSETRON) [Concomitant]
  11. ZOFRAN [Concomitant]
  12. BENADRYL ^ACHE^ (AMMONIUM CHLORIDE, DIPHENHYDRAMINE HYDROCHLORIDE, MEN [Concomitant]
  13. DOXORUBICIN HCL [Concomitant]
  14. PREDNISONE TAB [Concomitant]
  15. PROMETHAZINE [Concomitant]
  16. ETOPOSIDE [Concomitant]

REACTIONS (2)
  - HODGKIN'S DISEASE [None]
  - HYPERSENSITIVITY [None]
